FAERS Safety Report 15727144 (Version 4)
Quarter: 2019Q1

REPORT INFORMATION
  Report Type: Report from Study
  Country: None (occurrence: DE)
  Receive Date: 20181217
  Receipt Date: 20190305
  Transmission Date: 20190417
  Serious: Yes (Hospitalization)
  Sender: FDA-Public Use
  Company Number: DE-ABBVIE-18S-062-2587371-00

PATIENT
  Age: 77 Year
  Sex: Male

DRUGS (4)
  1. DUODOPA [Suspect]
     Active Substance: CARBIDOPA\LEVODOPA
     Dosage: MD 8 ML; CRD 3.8 ML/HR; CRN 2.2 ML/HR; ED 3 ML
     Route: 050
     Dates: start: 20180820, end: 201811
  2. XARELTO [Concomitant]
     Active Substance: RIVAROXABAN
     Indication: PRODUCT USED FOR UNKNOWN INDICATION
  3. DUODOPA [Suspect]
     Active Substance: CARBIDOPA\LEVODOPA
     Indication: PARKINSONISM
     Route: 050
     Dates: start: 20180807, end: 20181130
  4. PANTOPRAZOL [Concomitant]
     Active Substance: PANTOPRAZOLE SODIUM
     Indication: PRODUCT USED FOR UNKNOWN INDICATION

REACTIONS (7)
  - Gastrointestinal ulcer [Unknown]
  - Helicobacter infection [Recovered/Resolved]
  - Embedded device [Unknown]
  - Pruritus [Recovered/Resolved]
  - Gastric ulcer [Recovered/Resolved]
  - General physical health deterioration [Unknown]
  - Device kink [Unknown]

NARRATIVE: CASE EVENT DATE: 2018
